FAERS Safety Report 20122678 (Version 1)
Quarter: 2021Q4

REPORT INFORMATION
  Report Type: Spontaneous
  Country: US (occurrence: US)
  Receive Date: 20211128
  Receipt Date: 20211128
  Transmission Date: 20220303
  Serious: No
  Sender: FDA-Public Use
  Company Number: US-JNJFOC-20211146124

PATIENT
  Age: 73 Year
  Weight: 86.3 kg

DRUGS (1)
  1. DARZALEX [Suspect]
     Active Substance: DARATUMUMAB
     Indication: Plasma cell myeloma
     Dosage: 3 DARZALEX 400MG AND 2  100MG VIALS
     Route: 065
     Dates: start: 20210918

REACTIONS (2)
  - Product dose omission issue [Unknown]
  - Wrong technique in product usage process [Unknown]

NARRATIVE: CASE EVENT DATE: 20211117
